FAERS Safety Report 7399134-1 (Version None)
Quarter: 2011Q1

REPORT INFORMATION
  Report Type: 
  Country: None (occurrence: None)
  Receive Date: 20110328
  Receipt Date: 20110311
  Transmission Date: 20110831
  Serious: Yes (Hospitalization)
  Sender: FDA-Public Use
  Company Number: 029091

PATIENT
  Sex: Female

DRUGS (8)
  1. PREDNISOLONE [Concomitant]
  2. METHOTREXATE [Concomitant]
  3. OXIKLORIN [Concomitant]
  4. CIMZIA [Suspect]
     Indication: RHEUMATOID ARTHRITIS
     Dosage: SUBCUTANEOUS
     Route: 058
     Dates: start: 20100601, end: 20100919
  5. SULFASALAZINE [Concomitant]
  6. AMITRID [Concomitant]
  7. ALENDRONATE SODIUM [Concomitant]
  8. CALCICHEW /00108001/ [Concomitant]

REACTIONS (1)
  - UROSEPSIS [None]
